FAERS Safety Report 14617323 (Version 2)
Quarter: 2018Q2

REPORT INFORMATION
  Report Type: Spontaneous
  Country: US (occurrence: US)
  Receive Date: 20180309
  Receipt Date: 20180420
  Transmission Date: 20180711
  Serious: No
  Sender: FDA-Public Use
  Company Number: US-ASTRAZENECA-2018SE26888

PATIENT
  Age: 25679 Day
  Sex: Female
  Weight: 108.9 kg

DRUGS (14)
  1. LEVOTHYROXINE. [Concomitant]
     Active Substance: LEVOTHYROXINE
     Indication: HYPOTHYROIDISM
     Route: 048
  2. HYDROCODONE [Concomitant]
     Active Substance: HYDROCODONE
     Indication: PAIN
     Dosage: AS REQUIRED
     Route: 048
  3. IBUPROFEN. [Concomitant]
     Active Substance: IBUPROFEN
     Indication: PAIN
     Dosage: 800.0MG AS REQUIRED
     Route: 048
  4. MAGNESIUM [Concomitant]
     Active Substance: MAGNESIUM
     Dosage: 500.0MG UNKNOWN
     Route: 048
     Dates: start: 2016
  5. OMEGA 3 FISH OIL [Concomitant]
     Active Substance: FISH OIL\OMEGA-3 FATTY ACIDS
     Indication: POLYMYOSITIS
     Route: 048
  6. LEVOTHYROXINE. [Concomitant]
     Active Substance: LEVOTHYROXINE
     Indication: BASEDOW^S DISEASE
     Route: 048
  7. BYDUREON [Suspect]
     Active Substance: EXENATIDE
     Indication: DIABETES MELLITUS
     Route: 058
     Dates: start: 2017
  8. OMEPRAZOLE. [Suspect]
     Active Substance: OMEPRAZOLE
     Indication: DYSPEPSIA
     Route: 048
     Dates: start: 2008
  9. ASPIRIN. [Concomitant]
     Active Substance: ASPIRIN
     Indication: CARDIAC DISORDER
     Route: 048
  10. CELLCEPT [Concomitant]
     Active Substance: MYCOPHENOLATE MOFETIL\MYCOPHENOLATE MOFETIL HYDROCHLORIDE
     Indication: POLYMYOSITIS
     Route: 048
  11. OMEPRAZOLE. [Suspect]
     Active Substance: OMEPRAZOLE
     Indication: GASTROOESOPHAGEAL REFLUX DISEASE
     Route: 048
     Dates: start: 2008
  12. MULTIVITAMIN [Concomitant]
     Active Substance: VITAMINS
     Indication: ILL-DEFINED DISORDER
     Route: 048
  13. CITALOPRAM [Concomitant]
     Active Substance: CITALOPRAM HYDROBROMIDE
     Indication: DEPRESSION
     Route: 048
  14. GLIMEPIRIDE. [Concomitant]
     Active Substance: GLIMEPIRIDE
     Indication: DIABETES MELLITUS

REACTIONS (3)
  - Intentional product misuse [Recovered/Resolved]
  - Vitamin D decreased [Unknown]
  - Product physical issue [Unknown]

NARRATIVE: CASE EVENT DATE: 20180227
